FAERS Safety Report 19485390 (Version 1)
Quarter: 2021Q3

REPORT INFORMATION
  Report Type: Spontaneous
  Country: JP (occurrence: JP)
  Receive Date: 20210702
  Receipt Date: 20210702
  Transmission Date: 20211014
  Serious: Yes (Hospitalization)
  Sender: FDA-Public Use
  Company Number: JP-TEVA-2021-JP-1928676

PATIENT
  Age: 61 Year
  Sex: Male

DRUGS (23)
  1. IFOSFAMIDE. [Suspect]
     Active Substance: IFOSFAMIDE
     Indication: DIFFUSE LARGE B-CELL LYMPHOMA STAGE II
     Dosage: R?DEVIC THERAPY; EVERY 4 WEEKS FOR THREE CYCLES; TOTAL 3.4 G/ M2
     Route: 065
  2. IVABRADINE [Suspect]
     Active Substance: IVABRADINE
     Indication: CARDIAC FAILURE
     Dosage: 10 MILLIGRAM DAILY;
     Route: 048
  3. CARBOPLATIN. [Suspect]
     Active Substance: CARBOPLATIN
     Indication: DIFFUSE LARGE B-CELL LYMPHOMA STAGE II
     Dosage: R?DEVIC THERAPY; EVERY 4 WEEKS FOR THREE CYCLES
     Route: 065
  4. DOBUTAMINE [Concomitant]
     Active Substance: DOBUTAMINE HYDROCHLORIDE
     Indication: CARDIAC FAILURE
     Dosage: 150 MILLIGRAM DAILY;
     Route: 065
  5. CARVEDILOL. [Concomitant]
     Active Substance: CARVEDILOL
     Indication: CARDIAC FAILURE
     Route: 065
  6. ETOPOSIDE. [Suspect]
     Active Substance: ETOPOSIDE
     Indication: DIFFUSE LARGE B-CELL LYMPHOMA STAGE II
     Dosage: R?DEVIC THERAPY; EVERY 4 WEEKS FOR THREE CYCLES
     Route: 065
  7. ENALAPRIL [Suspect]
     Active Substance: ENALAPRIL
     Indication: TACHYCARDIA
     Route: 065
  8. VINCRISTINE [Suspect]
     Active Substance: VINCRISTINE
     Indication: DIFFUSE LARGE B-CELL LYMPHOMA STAGE II
     Dosage: R?THP? COP REGIMEN; EVERY 3 WEEKS FOR EIGHT CYCLES
     Route: 065
  9. EPLERENONE. [Suspect]
     Active Substance: EPLERENONE
     Indication: TACHYCARDIA
     Route: 065
  10. RITUXIMAB. [Suspect]
     Active Substance: RITUXIMAB
     Indication: DIFFUSE LARGE B-CELL LYMPHOMA STAGE II
     Dosage: R?DEVIC THERAPY; EVERY 4 WEEKS FOR THREE CYCLES
     Route: 065
  11. PIMOBENDANE [Concomitant]
     Route: 065
  12. TETRAHYDROPYRANYLADRIAMYCIN [Suspect]
     Active Substance: PIRARUBICIN
     Indication: DIFFUSE LARGE B-CELL LYMPHOMA STAGE II
     Dosage: R?THP? COP REGIMEN; TOTAL 400 MG/M2; EVERY 3 WEEKS FOR EIGHT CYCLES
     Route: 065
  13. EPLERENONE. [Suspect]
     Active Substance: EPLERENONE
     Indication: PLEURAL EFFUSION
  14. CYCLOPHOSPHAMIDE. [Suspect]
     Active Substance: CYCLOPHOSPHAMIDE
     Indication: DIFFUSE LARGE B-CELL LYMPHOMA STAGE II
     Dosage: R?THP? COP REGIMEN; TOTAL 6000 MG/ M2; EVERY 3 WEEKS FOR EIGHT CYCLES
     Route: 065
  15. DEXAMETHASONE. [Suspect]
     Active Substance: DEXAMETHASONE
     Indication: DIFFUSE LARGE B-CELL LYMPHOMA STAGE II
     Dosage: R?DEVIC THERAPY; EVERY 4 WEEKS FOR THREE CYCLES
     Route: 065
  16. DOBUTAMINE [Concomitant]
     Active Substance: DOBUTAMINE HYDROCHLORIDE
     Dosage: 75 MILLIGRAM DAILY;
     Route: 065
  17. ENALAPRIL [Suspect]
     Active Substance: ENALAPRIL
     Indication: PLEURAL EFFUSION
     Route: 065
  18. PREDNISOLONE. [Suspect]
     Active Substance: PREDNISOLONE
     Indication: DIFFUSE LARGE B-CELL LYMPHOMA STAGE II
     Dosage: R?THP? COP REGIMEN; EVERY 3 WEEKS FOR EIGHT CYCLES
     Route: 065
  19. RITUXIMAB. [Suspect]
     Active Substance: RITUXIMAB
     Indication: DIFFUSE LARGE B-CELL LYMPHOMA STAGE II
     Dosage: R?THP? COP REGIMEN; EVERY 3 WEEKS FOR EIGHT CYCLES ? THERAPY COMPLETED
     Route: 065
  20. PIMOBENDANE [Concomitant]
     Indication: CARDIAC FAILURE
     Route: 065
  21. AZOSEMIDE [Concomitant]
     Active Substance: AZOSEMIDE
     Indication: CARDIAC FAILURE
     Route: 065
  22. TOLVAPTAN [Concomitant]
     Active Substance: TOLVAPTAN
     Indication: CARDIAC FAILURE
     Route: 065
  23. CARVEDILOL. [Concomitant]
     Active Substance: CARVEDILOL
     Route: 065

REACTIONS (6)
  - Cardiac dysfunction [Recovering/Resolving]
  - Haemodynamic instability [Recovered/Resolved]
  - Off label use [Unknown]
  - Cardiac failure [Recovering/Resolving]
  - Drug ineffective [Unknown]
  - Blood pressure systolic decreased [Recovered/Resolved]
